FAERS Safety Report 19352989 (Version 1)
Quarter: 2021Q2

REPORT INFORMATION
  Report Type: Spontaneous
  Country: FR (occurrence: FR)
  Receive Date: 20210531
  Receipt Date: 20210531
  Transmission Date: 20210717
  Serious: Yes (Death, Other)
  Sender: FDA-Public Use
  Company Number: FR-PFIZER INC-2021575532

PATIENT
  Age: 35 Year
  Sex: Female

DRUGS (1)
  1. TALZENNA [Suspect]
     Active Substance: TALAZOPARIB TOSYLATE
     Indication: TRIPLE NEGATIVE BREAST CANCER
     Dosage: 1 MG
     Route: 048
     Dates: start: 202005, end: 202006

REACTIONS (2)
  - Neoplasm progression [Fatal]
  - Thrombocytopenia [Fatal]
